FAERS Safety Report 20924511 (Version 1)
Quarter: 2022Q2

REPORT INFORMATION
  Report Type: Spontaneous
  Country: US (occurrence: None)
  Receive Date: 20220606
  Receipt Date: 20220606
  Transmission Date: 20220721
  Serious: No
  Sender: FDA-Public Use
  Company Number: None

PATIENT
  Age: 54 Year
  Sex: Female

DRUGS (4)
  1. BEBTELOVIMAB [Suspect]
     Active Substance: BEBTELOVIMAB
     Indication: COVID-19
  2. Albuterol (Ventolin HFA) inhaler [Concomitant]
  3. Nystatin (Mycostatin) powder [Concomitant]
  4. Omeprazole (Prilosec OTC) [Concomitant]

REACTIONS (5)
  - Infusion related reaction [None]
  - Hyperhidrosis [None]
  - Flushing [None]
  - Feeling hot [None]
  - Chest discomfort [None]

NARRATIVE: CASE EVENT DATE: 20220605
